FAERS Safety Report 13731651 (Version 1)
Quarter: 2017Q3

REPORT INFORMATION
  Report Type: Spontaneous
  Country: CN (occurrence: CN)
  Receive Date: 20170707
  Receipt Date: 20170707
  Transmission Date: 20171127
  Serious: Yes (Hospitalization)
  Sender: FDA-Public Use
  Company Number: CN-ELI_LILLY_AND_COMPANY-CN201706011195

PATIENT
  Age: 45 Year
  Sex: Male

DRUGS (6)
  1. ZYPREXA [Suspect]
     Active Substance: OLANZAPINE
     Dosage: 15 MG, EACH EVENING
     Route: 048
  2. ZYPREXA [Suspect]
     Active Substance: OLANZAPINE
     Dosage: 10 MG, EACH EVENING
     Route: 048
     Dates: start: 20170110
  3. ZYPREXA [Suspect]
     Active Substance: OLANZAPINE
     Dosage: 10 MG, EACH MORNING
     Route: 048
  4. LORAZEPAM. [Concomitant]
     Active Substance: LORAZEPAM
  5. ZYPREXA [Suspect]
     Active Substance: OLANZAPINE
     Indication: PSYCHOTIC DISORDER
     Dosage: 30 MG, DAILY
     Route: 048
     Dates: start: 20170106, end: 20170107
  6. ZYPREXA [Suspect]
     Active Substance: OLANZAPINE
     Dosage: 15 MG, EACH MORNING
     Dates: start: 20170110

REACTIONS (13)
  - Language disorder [Recovered/Resolved]
  - Overdose [Unknown]
  - Suspiciousness [Recovered/Resolved]
  - Enuresis [Recovered/Resolved]
  - Psychotic symptom [Recovered/Resolved]
  - Disorientation [Recovered/Resolved]
  - Delirium [Recovered/Resolved]
  - Altered state of consciousness [Recovered/Resolved]
  - Nervousness [Recovered/Resolved]
  - Fear [Recovered/Resolved]
  - Agitation [Recovering/Resolving]
  - Abnormal behaviour [Recovered/Resolved]
  - Poor quality sleep [Recovered/Resolved]

NARRATIVE: CASE EVENT DATE: 20170106
